FAERS Safety Report 7228324-3 (Version None)
Quarter: 2011Q1

REPORT INFORMATION
  Report Type: 
  Country: None (occurrence: None)
  Receive Date: 20110114
  Receipt Date: 20110110
  Transmission Date: 20110831
  Serious: Yes (Hospitalization)
  Sender: FDA-Public Use
  Company Number: FR-PFIZER INC-2011002145

PATIENT
  Sex: Male
  Weight: 93 kg

DRUGS (7)
  1. LASIX [Suspect]
     Dosage: UNK
  2. ADVIL [Suspect]
     Dosage: 400 MG, SINGLE
     Route: 048
     Dates: start: 20100918, end: 20100918
  3. VITAMIN B6 [Suspect]
     Dosage: UNK
  4. VITAMIN B1 TAB [Suspect]
     Dosage: UNK
  5. COVERSYL [Suspect]
     Indication: HYPERTENSION
     Dosage: UNK
  6. LEXOMIL [Suspect]
     Dosage: AS NEEDED
  7. ROCEPHIN [Suspect]
     Dosage: UNK
     Dates: end: 20100924

REACTIONS (4)
  - COUGH [None]
  - PNEUMONIA [None]
  - PYREXIA [None]
  - SPUTUM INCREASED [None]
